FAERS Safety Report 9401154 (Version 1)
Quarter: 2013Q3

REPORT INFORMATION
  Report Type: Spontaneous
  Country: US (occurrence: US)
  Receive Date: 20130715
  Receipt Date: 20130715
  Transmission Date: 20140515
  Serious: Yes (Death)
  Sender: FDA-Public Use
  Company Number: US-TEVA-417938USA

PATIENT
  Age: 52 Year
  Sex: Male

DRUGS (1)
  1. FENTORA [Suspect]
     Indication: BREAKTHROUGH PAIN
     Route: 002

REACTIONS (1)
  - Pancreatic carcinoma [Fatal]
